FAERS Safety Report 7676442-8 (Version None)
Quarter: 2011Q3

REPORT INFORMATION
  Report Type: 
  Country: None (occurrence: None)
  Receive Date: 20110811
  Receipt Date: 20110804
  Transmission Date: 20111222
  Serious: Yes (Hospitalization)
  Sender: FDA-Public Use
  Company Number: US-CELGENEUS-163-22393-11080732

PATIENT
  Sex: Male

DRUGS (1)
  1. ISTODAX [Suspect]
     Dosage: 14 MILLIGRAM/SQ. METER
     Route: 065

REACTIONS (1)
  - MYOCARDIAL INFARCTION [None]
